FAERS Safety Report 9380433 (Version 2)
Quarter: 2013Q4

REPORT INFORMATION
  Report Type: Spontaneous
  Country: TR (occurrence: TR)
  Receive Date: 20130702
  Receipt Date: 20131226
  Transmission Date: 20140711
  Serious: Yes (Other)
  Sender: FDA-Public Use
  Company Number: TR-BAYER-2013-067171

PATIENT
  Age: 44 Year
  Sex: Female
  Weight: 56 kg

DRUGS (8)
  1. REGORAFENIB [Suspect]
     Indication: COLORECTAL CANCER METASTATIC
     Dosage: 160 MG/DAY
     Route: 048
     Dates: start: 20130527
  2. REGORAFENIB [Suspect]
     Indication: COLORECTAL CANCER METASTATIC
  3. URSOFALK [Concomitant]
     Dosage: UNK
  4. PANTPAS [Concomitant]
     Dosage: UNK
  5. MILK THISTLE [Concomitant]
     Dosage: UNK
  6. COZAAR [Concomitant]
     Dosage: 50 MG/DAY
  7. COZAAR [Concomitant]
     Dosage: 100 MG/DAY
  8. LEVOTHYROXIN [Concomitant]
     Dosage: 100 MG/DAY (1X1)

REACTIONS (29)
  - Carcinoembryonic antigen increased [None]
  - Fatigue [None]
  - Hearing impaired [None]
  - Dysphonia [None]
  - Fatigue [None]
  - Headache [None]
  - Bone pain [None]
  - Pyrexia [Recovered/Resolved]
  - Rash macular [None]
  - Hepatic enzyme increased [None]
  - Oral pain [None]
  - Mucosal inflammation [None]
  - Quality of life decreased [None]
  - Fatigue [Not Recovered/Not Resolved]
  - Dysphonia [Not Recovered/Not Resolved]
  - Mucosal inflammation [Not Recovered/Not Resolved]
  - Chills [Recovered/Resolved]
  - Palmar-plantar erythrodysaesthesia syndrome [Not Recovered/Not Resolved]
  - Rash [Not Recovered/Not Resolved]
  - Alanine aminotransferase increased [Recovered/Resolved]
  - Aspartate aminotransferase increased [Recovered/Resolved]
  - Gamma-glutamyltransferase increased [Recovered/Resolved]
  - Blood thyroid stimulating hormone increased [Recovering/Resolving]
  - Hypothyroidism [Recovering/Resolving]
  - Thrombocytopenia [None]
  - Carbohydrate antigen 19-9 increased [None]
  - Dysphonia [None]
  - Hypertension [Not Recovered/Not Resolved]
  - Anaemia [None]
